FAERS Safety Report 5875489-1 (Version None)
Quarter: 2008Q3

REPORT INFORMATION
  Report Type: 
  Country: None (occurrence: None)
  Receive Date: 20080909
  Receipt Date: 20080901
  Transmission Date: 20090109
  Serious: Yes (Other)
  Sender: FDA-Public Use
  Company Number: GB-AMGEN-US305583

PATIENT
  Sex: Female

DRUGS (1)
  1. ENBREL [Suspect]
     Indication: RHEUMATOID ARTHRITIS
     Dosage: UNKNOWN
     Route: 065
     Dates: start: 20070901, end: 20080701

REACTIONS (5)
  - ANORECTAL INFECTION [None]
  - BLOOD PRESSURE INCREASED [None]
  - BONE PAIN [None]
  - URINARY TRACT INFECTION [None]
  - WEIGHT DECREASED [None]
